FAERS Safety Report 13447958 (Version 1)
Quarter: 2017Q2

REPORT INFORMATION
  Report Type: Spontaneous
  Country: US (occurrence: US)
  Receive Date: 20170417
  Receipt Date: 20170417
  Transmission Date: 20170830
  Serious: Yes (Life-Threatening, Hospitalization, Disabling, Other)
  Sender: FDA-Public Use
  Company Number: None

PATIENT
  Age: 12 Year
  Sex: Male
  Weight: 44.49 kg

DRUGS (1)
  1. MIRALAX [Suspect]
     Active Substance: POLYETHYLENE GLYCOL 3350
     Indication: CONSTIPATION
     Dosage: 1 CAPEFUL DAILY 16 CAPEFULS A DAY FOR ^CLEAN-OUTS^ ? MULTIPLE TIMES A MONTH ONCE DAILY MOUTH
     Route: 048
     Dates: start: 20160301, end: 20170216

REACTIONS (14)
  - Tic [None]
  - Insomnia [None]
  - Anxiety [None]
  - Delirium [None]
  - Intentional self-injury [None]
  - Suicidal ideation [None]
  - Social anxiety disorder [None]
  - Abnormal behaviour [None]
  - Anger [None]
  - Mood swings [None]
  - Depression [None]
  - Paranoia [None]
  - Amnesia [None]
  - Disturbance in attention [None]

NARRATIVE: CASE EVENT DATE: 20160601
